FAERS Safety Report 6229671-4 (Version None)
Quarter: 2009Q2

REPORT INFORMATION
  Report Type: 
  Country: None (occurrence: None)
  Receive Date: 20090615
  Receipt Date: 20090604
  Transmission Date: 20091009
  Serious: Yes (Hospitalization)
  Sender: FDA-Public Use
  Company Number: JP-ASTRAZENECA-2009AP02331

PATIENT
  Age: 12050 Day
  Sex: Female
  Weight: 68 kg

DRUGS (7)
  1. SEROQUEL [Suspect]
     Indication: DEPRESSION
     Route: 048
     Dates: start: 20080108, end: 20080219
  2. SEROQUEL [Suspect]
     Route: 048
     Dates: start: 20090101
  3. DOGMATYL [Suspect]
     Indication: DEPRESSION
     Route: 048
     Dates: start: 20080212, end: 20080219
  4. TEGRETOL [Suspect]
     Indication: DEPRESSION
     Route: 048
     Dates: start: 20080108, end: 20080219
  5. ROHYPNOL [Suspect]
     Indication: DEPRESSION
     Route: 048
     Dates: start: 20070101, end: 20080219
  6. TOLEDOMIN [Suspect]
     Indication: DEPRESSION
     Route: 048
     Dates: start: 20080205, end: 20080219
  7. ANAFRANIL [Concomitant]
     Dates: start: 20070101, end: 20080219

REACTIONS (1)
  - DRUG RASH WITH EOSINOPHILIA AND SYSTEMIC SYMPTOMS [None]
